FAERS Safety Report 23902201 (Version 1)
Quarter: 2024Q2

REPORT INFORMATION
  Report Type: Report from Study
  Country: IE (occurrence: IE)
  Receive Date: 20240527
  Receipt Date: 20240527
  Transmission Date: 20240716
  Serious: Yes (Hospitalization)
  Sender: FDA-Public Use
  Company Number: IE-TAKEDA-2021TUS059688

PATIENT
  Age: 68 Year
  Sex: Female

DRUGS (1)
  1. HUMAN IMMUNOGLOBULIN G\HYALURONIDASE RECOMBINANT HUMAN [Suspect]
     Active Substance: HUMAN IMMUNOGLOBULIN G\HYALURONIDASE (HUMAN RECOMBINANT)
     Indication: Product used for unknown indication
     Dosage: 30 GRAM, Q3WEEKS
     Route: 058
     Dates: start: 20190725

REACTIONS (7)
  - Hospitalisation [Unknown]
  - Infusion site discharge [Recovered/Resolved]
  - Sinusitis [Recovered/Resolved]
  - Infusion site discomfort [Not Recovered/Not Resolved]
  - Device infusion issue [Recovering/Resolving]
  - Product use issue [Unknown]
  - Incorrect drug administration rate [Not Recovered/Not Resolved]

NARRATIVE: CASE EVENT DATE: 20210801
